FAERS Safety Report 19461612 (Version 1)
Quarter: 2021Q2

REPORT INFORMATION
  Report Type: Spontaneous
  Country: PL (occurrence: PL)
  Receive Date: 20210625
  Receipt Date: 20210625
  Transmission Date: 20210717
  Serious: Yes (Other)
  Sender: FDA-Public Use
  Company Number: PL-PFIZER INC-2021696317

PATIENT
  Age: 26 Year

DRUGS (6)
  1. SERTRALINE HCL [Suspect]
     Active Substance: SERTRALINE HYDROCHLORIDE
     Indication: DEPRESSION
     Dosage: 100 MG, DAILY
     Route: 065
  2. MIANSERIN [Interacting]
     Active Substance: MIANSERIN
     Indication: INSOMNIA
  3. OMEPRAZOLE. [Interacting]
     Active Substance: OMEPRAZOLE
     Dosage: UNK
     Route: 048
  4. SERTRALINE HCL [Interacting]
     Active Substance: SERTRALINE HYDROCHLORIDE
     Indication: INSOMNIA
  5. HYOSCINE BUTYLBROMIDE [Interacting]
     Active Substance: BUTYLSCOPOLAMINE BROMIDE
     Dosage: UNK
     Route: 065
  6. MIANSERIN [Interacting]
     Active Substance: MIANSERIN
     Indication: DEPRESSION
     Dosage: 30 MG, DAILY
     Route: 065

REACTIONS (2)
  - Drug interaction [Recovered/Resolved]
  - Levator syndrome [Recovered/Resolved]
